FAERS Safety Report 12371557 (Version 2)
Quarter: 2016Q4

REPORT INFORMATION
  Report Type: Spontaneous
  Country: JP (occurrence: JP)
  Receive Date: 20160516
  Receipt Date: 20161017
  Transmission Date: 20170207
  Serious: Yes (Other)
  Sender: FDA-Public Use
  Company Number: JP-VIIV HEALTHCARE LIMITED-JP2016JPN058810

PATIENT
  Age: 71 Year
  Sex: Female
  Weight: 30 kg

DRUGS (8)
  1. ZEFIX [Suspect]
     Active Substance: LAMIVUDINE
     Dosage: 100 MG, QD
     Route: 048
     Dates: start: 20160520
  2. UNKNOWN DRUG [Concomitant]
     Active Substance: UNSPECIFIED INGREDIENT
     Indication: OSTEOPOROSIS
     Dosage: UNK
  3. TENOZET [Concomitant]
     Active Substance: TENOFOVIR DISOPROXIL FUMARATE
     Dosage: 300 MG, UNK
     Dates: start: 20160520, end: 20160714
  4. ZEFIX [Suspect]
     Active Substance: LAMIVUDINE
     Indication: CHRONIC HEPATITIS B
     Dosage: 100 MG, QD
     Route: 048
     Dates: start: 200609, end: 20160519
  5. TENOZET [Concomitant]
     Active Substance: TENOFOVIR DISOPROXIL FUMARATE
     Dosage: 300 MG, UNK
     Dates: start: 20160715
  6. HEPSERA [Suspect]
     Active Substance: ADEFOVIR DIPIVOXIL
     Dosage: UNK
     Route: 048
     Dates: start: 20150918, end: 20160519
  7. HEPSERA [Suspect]
     Active Substance: ADEFOVIR DIPIVOXIL
     Indication: CHRONIC HEPATITIS B
     Dosage: 10 MG, UNK
     Route: 048
     Dates: start: 200703, end: 20150917
  8. BARACLUDE [Concomitant]
     Active Substance: ENTECAVIR
     Indication: CHRONIC HEPATITIS B
     Dosage: 0.5 MG, QD

REACTIONS (3)
  - Renal impairment [Not Recovered/Not Resolved]
  - Hepatitis B [Unknown]
  - Off label use [Unknown]

NARRATIVE: CASE EVENT DATE: 20150918
